FAERS Safety Report 25862255 (Version 1)
Quarter: 2025Q3

REPORT INFORMATION
  Report Type: Spontaneous
  Country: CN (occurrence: CN)
  Receive Date: 20250930
  Receipt Date: 20250930
  Transmission Date: 20251021
  Serious: Yes (Other)
  Sender: ASTELLAS
  Company Number: CN-ASTELLAS-2025-AER-052853

PATIENT
  Age: 80 Year
  Sex: Male

DRUGS (2)
  1. PADCEV [Suspect]
     Active Substance: ENFORTUMAB VEDOTIN-EJFV
     Indication: Product used for unknown indication
     Route: 042
     Dates: start: 20250428
  2. TORIPALIMAB [Suspect]
     Active Substance: TORIPALIMAB
     Indication: Product used for unknown indication
     Route: 065
     Dates: start: 20250428

REACTIONS (5)
  - Oesophageal ulcer [Recovering/Resolving]
  - Pharyngeal ulceration [Recovering/Resolving]
  - Weight decreased [Unknown]
  - Pruritus [Recovering/Resolving]
  - Dysphagia [Recovering/Resolving]

NARRATIVE: CASE EVENT DATE: 20250101
